FAERS Safety Report 11356480 (Version 2)
Quarter: 2015Q3

REPORT INFORMATION
  Report Type: Report from Study
  Country: AU (occurrence: AU)
  Receive Date: 20150807
  Receipt Date: 20150904
  Transmission Date: 20151125
  Serious: Yes (Hospitalization)
  Sender: FDA-Public Use
  Company Number: PHHY2015AU095225

PATIENT
  Sex: Male

DRUGS (1)
  1. CLOZARIL [Suspect]
     Active Substance: CLOZAPINE
     Indication: SCHIZOPHRENIA
     Dosage: 150 MG, BID
     Route: 048
     Dates: start: 20150711, end: 20150805

REACTIONS (11)
  - Upper respiratory tract infection [Unknown]
  - Alanine aminotransferase increased [Unknown]
  - Myocarditis [Unknown]
  - Cardiomyopathy [Unknown]
  - Aspartate aminotransferase increased [Unknown]
  - Chest pain [Recovering/Resolving]
  - Dyspnoea exertional [Unknown]
  - Productive cough [Unknown]
  - Gamma-glutamyltransferase increased [Unknown]
  - Cardiac failure congestive [Unknown]
  - Blood alkaline phosphatase increased [Unknown]
